FAERS Safety Report 9836847 (Version 1)
Quarter: 2014Q1

REPORT INFORMATION
  Report Type: Spontaneous
  Country: US (occurrence: None)
  Receive Date: 20140116
  Receipt Date: 20140116
  Transmission Date: 20141002
  Serious: Yes (Other)
  Sender: FDA-Public Use
  Company Number: None

PATIENT
  Age: 72 Year
  Sex: Female

DRUGS (6)
  1. ENBREL PREFILLED SYRINGE 50MG AMGEN [Suspect]
     Indication: RHEUMATOID ARTHRITIS
     Route: 058
     Dates: start: 20130821, end: 20140115
  2. ACYCLOVIR [Concomitant]
  3. PRENISONE [Concomitant]
  4. TRAMADOL [Concomitant]
  5. TYLENOL [Concomitant]
  6. VITAMIN B6 [Concomitant]

REACTIONS (1)
  - Jaw disorder [None]
